FAERS Safety Report 19953418 (Version 1)
Quarter: 2021Q4

REPORT INFORMATION
  Report Type: Spontaneous
  Country: US (occurrence: US)
  Receive Date: 20211013
  Receipt Date: 20211013
  Transmission Date: 20220303
  Serious: Yes (Other)
  Sender: FDA-Public Use
  Company Number: 2021A771706

PATIENT
  Age: 71 Year
  Sex: Male

DRUGS (2)
  1. CALQUENCE [Suspect]
     Active Substance: ACALABRUTINIB
     Route: 048
  2. IMBRUVICA [Suspect]
     Active Substance: IBRUTINIB
     Indication: Chronic lymphocytic leukaemia
     Route: 048
     Dates: start: 20210511

REACTIONS (4)
  - Platelet count decreased [Unknown]
  - Weight increased [Unknown]
  - White blood cell count increased [Unknown]
  - Headache [Unknown]

NARRATIVE: CASE EVENT DATE: 20210101
